FAERS Safety Report 5722533-8 (Version None)
Quarter: 2008Q2

REPORT INFORMATION
  Report Type: 
  Country: None (occurrence: None)
  Receive Date: 20080429
  Receipt Date: 20070703
  Transmission Date: 20081010
  Serious: No
  Sender: FDA-Public Use
  Company Number: US-ASTRAZENECA-2007UW15642

PATIENT
  Age: 85 Year
  Sex: Female
  Weight: 47.6 kg

DRUGS (9)
  1. NEXIUM [Suspect]
     Indication: DYSPEPSIA
     Route: 048
     Dates: start: 20070627
  2. ZOCOR [Concomitant]
  3. ASPIRIN [Concomitant]
  4. COREG [Concomitant]
  5. RESTORIL [Concomitant]
  6. MULTIVITAMIN (EYE VITAMIN) [Concomitant]
  7. MAXZIDE [Concomitant]
  8. PANCREASE [Concomitant]
  9. GLUCOVANCE [Concomitant]

REACTIONS (1)
  - EYE DISORDER [None]
